FAERS Safety Report 24434426 (Version 1)
Quarter: 2024Q4

REPORT INFORMATION
  Report Type: Spontaneous
  Country: FR (occurrence: FR)
  Receive Date: 20241014
  Receipt Date: 20241014
  Transmission Date: 20250114
  Serious: Yes (Hospitalization)
  Sender: MYLAN
  Company Number: None

PATIENT
  Age: 61 Year
  Sex: Female
  Weight: 58 kg

DRUGS (4)
  1. ALPRAZOLAM [Interacting]
     Active Substance: ALPRAZOLAM
     Indication: Product used for unknown indication
     Dosage: 1 MILLIGRAM, TOTAL
     Route: 048
     Dates: start: 20240902, end: 20240902
  2. VENLAFAXINE [Interacting]
     Active Substance: VENLAFAXINE HYDROCHLORIDE
     Indication: Product used for unknown indication
     Dosage: 75 MILLIGRAM, TOTAL
     Route: 048
     Dates: start: 20240902, end: 20240902
  3. ETIFOXINE [Interacting]
     Active Substance: ETIFOXINE
     Indication: Product used for unknown indication
     Dosage: 50 MILLIGRAM, TOTAL
     Route: 048
     Dates: start: 20240902, end: 20240902
  4. PERICIAZINE [Interacting]
     Active Substance: PERICIAZINE
     Indication: Product used for unknown indication
     Dosage: 2 MILLIGRAM, TOTAL
     Route: 048
     Dates: start: 20240902, end: 20240902

REACTIONS (5)
  - Asthenia [Not Recovered/Not Resolved]
  - Somnolence [Not Recovered/Not Resolved]
  - Wrong patient received product [Not Recovered/Not Resolved]
  - Drug interaction [Not Recovered/Not Resolved]
  - Product administration error [Unknown]

NARRATIVE: CASE EVENT DATE: 20240902
